FAERS Safety Report 5065881-X (Version None)
Quarter: 2006Q3

REPORT INFORMATION
  Report Type: 
  Country: None (occurrence: None)
  Receive Date: 20060728
  Receipt Date: 20060728
  Transmission Date: 20061208
  Serious: No
  Sender: FDA-Public Use
  Company Number: None

PATIENT
  Age: 39 Year
  Sex: Female

DRUGS (5)
  1. XANAX XR [Suspect]
     Indication: GENERALISED ANXIETY DISORDER
     Dosage: 3 MG QAM
     Dates: start: 20050803
  2. XANAX [Suspect]
     Indication: PANIC DISORDER
     Dosage: 1 MG Q HS
     Dates: start: 20050803
  3. XANAX [Suspect]
     Indication: SOCIAL PHOBIA
     Dosage: 1 MG Q HS
     Dates: start: 20050803
  4. RISPERDAL [Concomitant]
  5. CYMBALTA [Concomitant]

REACTIONS (3)
  - PRURITUS [None]
  - RASH GENERALISED [None]
  - THERAPEUTIC RESPONSE UNEXPECTED WITH DRUG SUBSTITUTION [None]
